FAERS Safety Report 16314392 (Version 1)
Quarter: 2019Q2

REPORT INFORMATION
  Report Type: Spontaneous
  Country: US (occurrence: US)
  Receive Date: 20190514
  Receipt Date: 20190514
  Transmission Date: 20190711
  Serious: Yes (Death)
  Sender: FDA-Public Use
  Company Number: None

PATIENT
  Age: 65 Year
  Sex: Female
  Weight: 74.39 kg

DRUGS (9)
  1. ETOPOSIDE. [Suspect]
     Active Substance: ETOPOSIDE
     Indication: LUNG CARCINOMA CELL TYPE UNSPECIFIED STAGE I
     Dosage: ?          OTHER FREQUENCY:EVERY THREE WEEKS;?
     Route: 042
     Dates: start: 20190506, end: 20190514
  2. DIPHENHYDRAMINE. [Concomitant]
     Active Substance: DIPHENHYDRAMINE
  3. MANNITOL 25% [Concomitant]
     Active Substance: MANNITOL
  4. ONDASTERON [Concomitant]
  5. CISPLATIN. [Concomitant]
     Active Substance: CISPLATIN
     Dates: start: 20190506, end: 20190514
  6. DEXAMETHASONE. [Concomitant]
     Active Substance: DEXAMETHASONE
  7. CISPLATIN. [Suspect]
     Active Substance: CISPLATIN
  8. ETOPOSIDE. [Concomitant]
     Active Substance: ETOPOSIDE
     Dates: start: 20190506, end: 20190514
  9. FUROSEMIDE. [Concomitant]
     Active Substance: FUROSEMIDE

REACTIONS (1)
  - Death [None]

NARRATIVE: CASE EVENT DATE: 20190507
